FAERS Safety Report 6327826-1 (Version None)
Quarter: 2009Q3

REPORT INFORMATION
  Report Type: 
  Country: None (occurrence: None)
  Receive Date: 20090824
  Receipt Date: 20090806
  Transmission Date: 20100115
  Serious: Yes (Hospitalization)
  Sender: FDA-Public Use
  Company Number: 2009-201156-NL

PATIENT
  Age: 35 Year
  Sex: Female

DRUGS (7)
  1. HUMEGON [Suspect]
     Indication: IN VITRO FERTILISATION
     Dosage: 1 DF;
  2. PREGNYL [Suspect]
     Indication: IN VITRO FERTILISATION
     Dosage: 1 DF;
  3. PROGESTAN (MICRONIZED PROGESTERONE) (PROGESTERONE) [Suspect]
     Indication: IN VITRO FERTILISATION
     Dosage: 1 DF;
  4. PROFASI HP [Concomitant]
  5. DECAPEPTYL (TRIPTORELIN ACETATE) [Concomitant]
  6. METRODIN [Concomitant]
  7. MENOGON [Concomitant]

REACTIONS (5)
  - FIBROMYALGIA [None]
  - MOBILITY DECREASED [None]
  - OSTEOARTHRITIS [None]
  - PELVIC PAIN [None]
  - SPINAL FRACTURE [None]
